FAERS Safety Report 20061569 (Version 2)
Quarter: 2021Q4

REPORT INFORMATION
  Report Type: Report from Study
  Country: CO (occurrence: CO)
  Receive Date: 20211112
  Receipt Date: 20211213
  Transmission Date: 20220303
  Serious: Yes (Hospitalization, Other)
  Sender: FDA-Public Use
  Company Number: CO-ASTELLAS-2021US043036

PATIENT
  Age: 86 Year
  Sex: Male

DRUGS (4)
  1. ENZALUTAMIDE [Suspect]
     Active Substance: ENZALUTAMIDE
     Indication: Hormone-refractory prostate cancer
     Dosage: 160 MG, ONCE DAILY (STRENGTH: 40MG)
     Route: 048
     Dates: start: 20200811, end: 202109
  2. ENZALUTAMIDE [Suspect]
     Active Substance: ENZALUTAMIDE
     Dosage: 160 MG, ONCE DAILY (STRENGTH: 40MG)
     Route: 048
  3. LEUPROLIDE ACETATE [Concomitant]
     Active Substance: LEUPROLIDE ACETATE
     Indication: Product used for unknown indication
     Dosage: UNK UNK, UNKNOWN FREQ.
     Route: 065
  4. LEUPROLIDE ACETATE [Concomitant]
     Active Substance: LEUPROLIDE ACETATE

REACTIONS (8)
  - Bacterial infection [Recovered/Resolved]
  - Pneumonia [Recovered/Resolved]
  - Respiratory distress [Unknown]
  - Dyspnoea [Recovering/Resolving]
  - Oesophagitis [Recovering/Resolving]
  - Vertebral lesion [Recovered/Resolved]
  - Disease progression [Recovered/Resolved]
  - Constipation [Recovered/Resolved]

NARRATIVE: CASE EVENT DATE: 20210915
